FAERS Safety Report 16069922 (Version 1)
Quarter: 2019Q1

REPORT INFORMATION
  Report Type: Report from Study
  Country: IT (occurrence: IT)
  Receive Date: 20190314
  Receipt Date: 20190314
  Transmission Date: 20190418
  Serious: Yes (Other)
  Sender: FDA-Public Use
  Company Number: IT-TEVA-2019-IT-1022923

PATIENT
  Age: 83 Year
  Sex: Male

DRUGS (4)
  1. MADOPAR 100 MG + 25 MG CAPSULE RIGIDE [Concomitant]
     Active Substance: BENSERAZIDE HYDROCHLORIDE\LEVODOPA
  2. SIRIO [Concomitant]
     Active Substance: CARBIDOPA\MELEVODOPA
     Route: 048
  3. MIRAPEXIN 0.18?MG TABLETS [Concomitant]
     Route: 048
  4. ZOLPIDEM TARTRATE. [Suspect]
     Active Substance: ZOLPIDEM TARTRATE
     Indication: INSOMNIA
     Route: 060
     Dates: start: 20190209, end: 20190209

REACTIONS (2)
  - Hallucination, visual [Recovering/Resolving]
  - Psychomotor hyperactivity [Recovering/Resolving]

NARRATIVE: CASE EVENT DATE: 20190210
